FAERS Safety Report 4682257-5 (Version None)
Quarter: 2005Q2

REPORT INFORMATION
  Report Type: 
  Country: None (occurrence: None)
  Receive Date: 20050531
  Receipt Date: 20050513
  Transmission Date: 20051028
  Serious: Yes (Hospitalization)
  Sender: FDA-Public Use
  Company Number: THYM-10500

PATIENT
  Age: 36 Year
  Sex: Male
  Weight: 77.3 kg

DRUGS (8)
  1. THYMOGLOBULIN [Suspect]
     Indication: KIDNEY TRANSPLANT REJECTION
     Dosage: 100 MG QD IV
     Route: 042
     Dates: start: 20050412, end: 20050415
  2. THYMOGLOBULIN [Suspect]
     Indication: RENAL TRANSPLANT
     Dosage: 100 MG QD IV
     Route: 042
     Dates: start: 20050412, end: 20050415
  3. THYMOGLOBULIN [Suspect]
     Indication: KIDNEY TRANSPLANT REJECTION
     Dosage: 100 MG QD IV
     Route: 042
     Dates: start: 20050420
  4. THYMOGLOBULIN [Suspect]
     Indication: RENAL TRANSPLANT
     Dosage: 100 MG QD IV
     Route: 042
     Dates: start: 20050420
  5. TACROLIMUS [Concomitant]
  6. RAPAMUNE [Concomitant]
  7. PREDNISONE TAB [Concomitant]
  8. MYCOPHENOLATE MOFETIL [Concomitant]

REACTIONS (7)
  - BLOOD CREATININE INCREASED [None]
  - COMPLICATIONS OF TRANSPLANTED KIDNEY [None]
  - FLUID OVERLOAD [None]
  - INFECTION [None]
  - NAUSEA [None]
  - PULMONARY OEDEMA [None]
  - VOMITING [None]
